FAERS Safety Report 19020133 (Version 1)
Quarter: 2021Q1

REPORT INFORMATION
  Report Type: Spontaneous
  Country: US (occurrence: US)
  Receive Date: 20210317
  Receipt Date: 20210317
  Transmission Date: 20210420
  Serious: Yes (Hospitalization)
  Sender: FDA-Public Use
  Company Number: US-BAUSCH-BL-2021-008680

PATIENT
  Age: 48 Year
  Sex: Male

DRUGS (1)
  1. BUPROPION EXTENDED RELEASE [Suspect]
     Active Substance: BUPROPION
     Indication: PRODUCT USED FOR UNKNOWN INDICATION
     Dosage: INGESTION OF 90 TABLETS OF 300MG EXTENDED?RELEASE BUPROPION (2700MG TOTAL)
     Route: 048

REACTIONS (5)
  - Brain stem syndrome [Recovered/Resolved]
  - Suicide attempt [Unknown]
  - Status epilepticus [Recovered/Resolved]
  - Intentional overdose [Unknown]
  - Electrocardiogram QT prolonged [Recovered/Resolved]
